FAERS Safety Report 16705579 (Version 4)
Quarter: 2019Q4

REPORT INFORMATION
  Report Type: Spontaneous
  Country: NZ (occurrence: NZ)
  Receive Date: 20190815
  Receipt Date: 20191207
  Transmission Date: 20200122
  Serious: Yes (Death, Hospitalization)
  Sender: FDA-Public Use
  Company Number: NZ-ABBVIE-19K-118-2890223-00

PATIENT
  Sex: Male

DRUGS (19)
  1. HUMIRA [Suspect]
     Active Substance: ADALIMUMAB
     Dosage: 80 MG LOADING DOSE
     Route: 058
     Dates: start: 20190215, end: 20190215
  2. METFORMIN [Concomitant]
     Active Substance: METFORMIN HYDROCHLORIDE
     Indication: DIABETES MELLITUS
     Route: 048
     Dates: start: 20110209, end: 20190522
  3. CILAZAPRIL [Concomitant]
     Active Substance: CILAZAPRIL ANHYDROUS
     Indication: HYPERTENSION
     Route: 048
     Dates: start: 20110209, end: 20190522
  4. CLOPIDOGREL [Concomitant]
     Active Substance: CLOPIDOGREL BISULFATE
     Indication: CEREBROVASCULAR ACCIDENT
     Route: 048
     Dates: start: 20120307, end: 20190522
  5. PREDNISONE. [Concomitant]
     Active Substance: PREDNISONE
     Indication: HIDRADENITIS
     Route: 048
     Dates: start: 20180725, end: 20190522
  6. SENNOSIDE [Concomitant]
     Active Substance: SENNOSIDES
     Indication: CONSTIPATION
     Dosage: AT NIGHT
     Route: 048
     Dates: start: 20190218, end: 20190522
  7. NOVORAPID [Concomitant]
     Active Substance: INSULIN ASPART
     Indication: DIABETES MELLITUS
     Dosage: AS REQUIRED
     Route: 058
     Dates: start: 20190218, end: 20190522
  8. PSYLLIUM HUSK POWDER [Concomitant]
     Indication: FAECAL VOLUME DECREASED
     Route: 048
     Dates: start: 20190218, end: 20190522
  9. PENMIX [Concomitant]
     Active Substance: INSULIN HUMAN
     Indication: DIABETES MELLITUS
     Dates: start: 20190218, end: 20190522
  10. DOCUSATE SODIUM. [Concomitant]
     Active Substance: DOCUSATE SODIUM
     Indication: CONSTIPATION
     Dosage: AT NIGHT
     Dates: start: 20190218, end: 20190522
  11. HUMIRA [Suspect]
     Active Substance: ADALIMUMAB
     Indication: HIDRADENITIS
     Dosage: 160 MG LOADING DOSE
     Route: 058
     Dates: start: 20190201, end: 20190201
  12. HUMIRA [Suspect]
     Active Substance: ADALIMUMAB
     Route: 058
     Dates: start: 20190305, end: 20190522
  13. PYRIDOXINE [Concomitant]
     Active Substance: PYRIDOXINE
     Indication: ANTIBIOTIC PROPHYLAXIS
     Route: 048
     Dates: start: 20181004, end: 20190522
  14. PARACETAMOL [Concomitant]
     Active Substance: ACETAMINOPHEN
     Indication: ANALGESIC THERAPY
     Route: 048
     Dates: start: 20190218, end: 20190522
  15. ACITRETIN. [Concomitant]
     Active Substance: ACITRETIN
     Indication: HIDRADENITIS
     Route: 048
     Dates: start: 20180923, end: 20190522
  16. ISONIAZID. [Concomitant]
     Active Substance: ISONIAZID
     Indication: ANTIBIOTIC PROPHYLAXIS
     Route: 048
     Dates: start: 20181004, end: 20190522
  17. CODEINE [Concomitant]
     Active Substance: CODEINE
     Indication: ANALGESIC THERAPY
     Route: 048
     Dates: start: 20190218, end: 20190522
  18. FORTISIP [Concomitant]
     Active Substance: CARBOHYDRATES\FATTY ACIDS\MINERALS\PROTEIN\VITAMINS
     Indication: NUTRITIONAL SUPPLEMENTATION
     Route: 048
     Dates: start: 20190218, end: 20190522
  19. MORPHINE [Concomitant]
     Active Substance: MORPHINE
     Indication: ANALGESIC THERAPY
     Dosage: AS REQUIRED
     Route: 048
     Dates: start: 20190218, end: 20190522

REACTIONS (4)
  - General physical health deterioration [Fatal]
  - Mobility decreased [Fatal]
  - Stroke in evolution [Fatal]
  - Product packaging issue [Unknown]

NARRATIVE: CASE EVENT DATE: 2019
